FAERS Safety Report 10187611 (Version 1)
Quarter: 2014Q2

REPORT INFORMATION
  Report Type: Spontaneous
  Country: US (occurrence: None)
  Receive Date: 20140521
  Receipt Date: 20140521
  Transmission Date: 20141212
  Serious: No
  Sender: FDA-Public Use
  Company Number: None

PATIENT
  Sex: Female
  Weight: 139.4 kg

DRUGS (1)
  1. LEVOTHYROXINE [Suspect]

REACTIONS (3)
  - Fatigue [None]
  - Constipation [None]
  - Alopecia [None]
